FAERS Safety Report 4590585-7 (Version None)
Quarter: 2005Q1

REPORT INFORMATION
  Report Type: 
  Country: None (occurrence: None)
  Receive Date: 20050224
  Receipt Date: 20050218
  Transmission Date: 20050727
  Serious: Yes (Hospitalization)
  Sender: FDA-Public Use
  Company Number: GB-GLAXOSMITHKLINE-B0372274A

PATIENT
  Age: 84 Year
  Sex: Male
  Weight: 82 kg

DRUGS (4)
  1. ROPINIROLE [Suspect]
     Indication: PARKINSONISM
     Dosage: 1MG PER DAY
     Route: 048
     Dates: start: 20040624, end: 20050125
  2. PROPRANOLOL [Concomitant]
     Indication: PAIN
     Dosage: 40MG PER DAY
     Route: 048
     Dates: start: 19910101
  3. MADOPAR [Concomitant]
     Indication: PARKINSON'S DISEASE
     Dosage: 125MG PER DAY
     Route: 048
     Dates: start: 19970101
  4. CO-DYDRAMOL [Concomitant]
     Indication: PARKINSON'S DISEASE
     Route: 048
     Dates: start: 20040101

REACTIONS (4)
  - ABNORMAL BEHAVIOUR [None]
  - CONFUSIONAL STATE [None]
  - DYSARTHRIA [None]
  - HALLUCINATION [None]
